FAERS Safety Report 7440241-2 (Version None)
Quarter: 2011Q2

REPORT INFORMATION
  Report Type: 
  Country: None (occurrence: None)
  Receive Date: 20110427
  Receipt Date: 20100608
  Transmission Date: 20111010
  Serious: Yes (Other)
  Sender: FDA-Public Use
  Company Number: US-PFIZER INC-2010072014

PATIENT
  Sex: Male

DRUGS (1)
  1. ZITHROMAX [Suspect]
     Indication: SINUSITIS
     Dosage: 500 MG DAILY
     Dates: start: 20100101, end: 20100101

REACTIONS (1)
  - DEAFNESS [None]
